FAERS Safety Report 7414715-4 (Version None)
Quarter: 2011Q2

REPORT INFORMATION
  Report Type: 
  Country: None (occurrence: None)
  Receive Date: 20110414
  Receipt Date: 20110218
  Transmission Date: 20111010
  Serious: Yes (Death, Other)
  Sender: FDA-Public Use
  Company Number: US-BAYER-200934776NA

PATIENT
  Age: 74 Year
  Sex: Male

DRUGS (5)
  1. ACETYLSALICYLIC ACID SRT [Concomitant]
     Dosage: 81 MG, QD
     Route: 048
  2. CAPTOPRIL [Concomitant]
     Dosage: 5 MG, BID
     Route: 048
  3. VISIPAQUE [IODINE,IODIXANOL] [Concomitant]
     Dosage: 125 ML, UNK
     Dates: start: 20060101
  4. TRASYLOL [Suspect]
     Indication: PRODUCT USED FOR UNKNOWN INDICATION
  5. SAW PALMETTO [Concomitant]
     Dosage: 320 MG, QD
     Route: 048

REACTIONS (15)
  - MULTI-ORGAN FAILURE [None]
  - EMOTIONAL DISTRESS [None]
  - NERVOUSNESS [None]
  - ANHEDONIA [None]
  - PAIN [None]
  - UNEVALUABLE EVENT [None]
  - INJURY [None]
  - ANXIETY [None]
  - FEAR [None]
  - DEATH [None]
  - RENAL FAILURE [None]
  - RENAL INJURY [None]
  - FEAR OF DEATH [None]
  - DEPRESSION [None]
  - DISABILITY [None]
